FAERS Safety Report 5024880-4 (Version None)
Quarter: 2006Q2

REPORT INFORMATION
  Report Type: 
  Country: None (occurrence: None)
  Receive Date: 20060613
  Receipt Date: 20060605
  Transmission Date: 20061013
  Serious: Yes (Death)
  Sender: FDA-Public Use
  Company Number: US-SANOFI-SYNTHELABO-A03200603592

PATIENT
  Sex: Male
  Weight: 46.3 kg

DRUGS (7)
  1. PLAVIX [Suspect]
     Indication: DRUG USE FOR UNKNOWN INDICATION
     Route: 048
  2. NITROGLYCERIN [Concomitant]
     Dosage: UNK
     Route: 061
  3. CARDIZEM [Concomitant]
     Dosage: UNK
     Route: 048
  4. BUMEX [Concomitant]
     Route: 048
  5. AMBIEN [Concomitant]
     Dosage: UNK
     Route: 048
  6. PREDNISONE [Concomitant]
     Dosage: UNK
     Route: 048
  7. LIPITOR [Concomitant]
     Dosage: UNK
     Route: 048

REACTIONS (1)
  - CARDIAC FAILURE CONGESTIVE [None]
